FAERS Safety Report 7808947-0 (Version None)
Quarter: 2011Q4

REPORT INFORMATION
  Report Type: 
  Country: None (occurrence: None)
  Receive Date: 20111006
  Receipt Date: 20110920
  Transmission Date: 20120403
  Serious: Yes (Hospitalization, Other)
  Sender: FDA-Public Use
  Company Number: 2011MA014187

PATIENT
  Age: 88 Year
  Sex: Female

DRUGS (2)
  1. VENLAFAXINE [Suspect]
     Indication: DEPRESSION
     Dosage: 75 MG;QD;
     Dates: start: 20100113, end: 20100207
  2. CLINDAMYCIN PHOSPHATE [Suspect]
     Indication: BACTERAEMIA
     Dosage: PO
     Route: 048
     Dates: start: 20100103, end: 20100207

REACTIONS (4)
  - AGRANULOCYTOSIS [None]
  - STAPHYLOCOCCAL BACTERAEMIA [None]
  - MAJOR DEPRESSION [None]
  - TOXICITY TO VARIOUS AGENTS [None]
